FAERS Safety Report 11142875 (Version 1)
Quarter: 2015Q2

REPORT INFORMATION
  Report Type: Spontaneous
  Country: TR (occurrence: TR)
  Receive Date: 20150525
  Receipt Date: 20150525
  Transmission Date: 20150821
  Serious: Yes (Hospitalization)
  Sender: FDA-Public Use
  Company Number: PHHY2015TR058868

PATIENT
  Age: 21 Year
  Sex: Male

DRUGS (1)
  1. WARFARIN [Suspect]
     Active Substance: WARFARIN
     Indication: ANTICOAGULANT THERAPY
     Route: 065

REACTIONS (9)
  - Arthralgia [Recovered/Resolved]
  - Neuropathy peripheral [Recovered/Resolved]
  - Groin pain [Recovered/Resolved]
  - Mass [Recovered/Resolved]
  - Haematoma [Recovered/Resolved]
  - Tenderness [Recovered/Resolved]
  - Injection site swelling [Recovered/Resolved]
  - Joint range of motion decreased [Recovered/Resolved]
  - Hypoaesthesia [Recovered/Resolved]
